FAERS Safety Report 11321693 (Version 2)
Quarter: 2015Q3

REPORT INFORMATION
  Report Type: Not Available
  Country: None (occurrence: US)
  Receive Date: 20150729
  Receipt Date: 20150818
  Transmission Date: 20151125
  Serious: No
  Sender: FDA-Public Use
  Company Number: US-MERZ NORTH AMERICA, INC.-15MRZ-00399

PATIENT
  Age: 51 Year
  Sex: Female

DRUGS (3)
  1. VITAMINS [Concomitant]
     Active Substance: VITAMINS
  2. 24 HOUR ALLERGY MEDICINE [Concomitant]
  3. XEOMIN [Suspect]
     Active Substance: INCOBOTULINUMTOXINA
     Indication: SKIN COSMETIC PROCEDURE
     Dosage: FRONTALIS - 8 UNITS INJECTED??LEFT CROW^S FEET - 8 UNITS INJECTED??RIGHT CROW^S FEET - 8 UNITS INJEC
     Dates: start: 20150421, end: 20150601

REACTIONS (1)
  - Drug ineffective [Not Recovered/Not Resolved]
